FAERS Safety Report 26028390 (Version 1)
Quarter: 2025Q4

REPORT INFORMATION
  Report Type: Spontaneous
  Country: US (occurrence: US)
  Receive Date: 20251111
  Receipt Date: 20251111
  Transmission Date: 20260117
  Serious: No
  Sender: NEUROCRINE BIOSCIENCES
  Company Number: US-NBI-NBI-US-5008-2025

PATIENT
  Age: 11 Year
  Sex: Female

DRUGS (1)
  1. CRENESSITY [Suspect]
     Active Substance: CRINECERFONT
     Indication: Adrenogenital syndrome
     Dosage: 50 MG (MILLILITRE PER SQUARE METRE, 1/2 DOSE (50 MG)))
     Route: 048

REACTIONS (2)
  - Weight decreased [Not Recovered/Not Resolved]
  - Prescribed underdose [Unknown]
